FAERS Safety Report 8226268-1 (Version None)
Quarter: 2012Q1

REPORT INFORMATION
  Report Type: 
  Country: None (occurrence: None)
  Receive Date: 20120321
  Receipt Date: 20120314
  Transmission Date: 20120608
  Serious: Yes (Death, Other)
  Sender: FDA-Public Use
  Company Number: PHHY2012JP019503

PATIENT
  Age: 54 Year
  Sex: Female

DRUGS (4)
  1. FLUDARABINE PHOSPHATE [Concomitant]
  2. MELPHALAN HYDROCHLORIDE [Concomitant]
  3. CYCLOSPORINE [Suspect]
     Indication: PROPHYLAXIS AGAINST GRAFT VERSUS HOST DISEASE
  4. METHOTREXATE [Concomitant]
     Indication: BONE MARROW TRANSPLANT

REACTIONS (5)
  - ACUTE GRAFT VERSUS HOST DISEASE [None]
  - POST TRANSPLANT DISTAL LIMB SYNDROME [None]
  - THROMBOTIC MICROANGIOPATHY [None]
  - OEDEMA [None]
  - PAIN IN EXTREMITY [None]
